FAERS Safety Report 19970564 (Version 1)
Quarter: 2021Q4

REPORT INFORMATION
  Report Type: Spontaneous
  Country: FR (occurrence: FR)
  Receive Date: 20211019
  Receipt Date: 20211019
  Transmission Date: 20220303
  Serious: No
  Sender: FDA-Public Use
  Company Number: FR-LUPIN PHARMACEUTICALS INC.-2021-19610

PATIENT
  Age: 74 Year
  Sex: Female

DRUGS (2)
  1. VANCOMYCIN [Interacting]
     Active Substance: VANCOMYCIN
     Indication: Endophthalmitis
     Dosage: UNK (INJECTION)
  2. CEFTAZIDIME [Interacting]
     Active Substance: CEFTAZIDIME
     Indication: Endophthalmitis
     Dosage: UNK (INJECTION)

REACTIONS (2)
  - Product deposit [Unknown]
  - Drug interaction [Unknown]
